FAERS Safety Report 9375725 (Version 2)
Quarter: 2013Q3

REPORT INFORMATION
  Report Type: Spontaneous
  Country: GB (occurrence: GB)
  Receive Date: 20130628
  Receipt Date: 20130806
  Transmission Date: 20140515
  Serious: Yes (Other)
  Sender: FDA-Public Use
  Company Number: GB-PFIZER INC-2013191078

PATIENT
  Sex: Male

DRUGS (2)
  1. PREGABALIN [Suspect]
     Indication: CERVICAL MYELOPATHY
     Dosage: DOSE AND FREQUENCY UNKNOWN
     Route: 065
  2. BACLOFEN [Suspect]
     Indication: CERVICAL MYELOPATHY
     Dosage: 60 MG DAILY
     Route: 065

REACTIONS (7)
  - Anxiety [Not Recovered/Not Resolved]
  - Dysphagia [Recovering/Resolving]
  - Weight decreased [Unknown]
  - Malaise [Unknown]
  - Spinal cord compression [Unknown]
  - Pain [Unknown]
  - Sleep disorder [Not Recovered/Not Resolved]
